FAERS Safety Report 25240206 (Version 1)
Quarter: 2025Q2

REPORT INFORMATION
  Report Type: Spontaneous
  Country: US (occurrence: US)
  Receive Date: 20250425
  Receipt Date: 20250425
  Transmission Date: 20250717
  Serious: Yes (Other)
  Sender: PFIZER
  Company Number: US-PFIZER INC-PV202500049094

PATIENT
  Age: 37 Year
  Sex: Female

DRUGS (1)
  1. XELJANZ [Suspect]
     Active Substance: TOFACITINIB CITRATE
     Indication: Ankylosing spondylitis
     Dosage: 5 MG, 2X/DAY
     Route: 048
     Dates: start: 20250403, end: 20250409

REACTIONS (4)
  - Drug hypersensitivity [Unknown]
  - Arrhythmia [Unknown]
  - Dyspnoea [Unknown]
  - Throat irritation [Unknown]

NARRATIVE: CASE EVENT DATE: 20250409
